FAERS Safety Report 6221446-5 (Version None)
Quarter: 2009Q2

REPORT INFORMATION
  Report Type: 
  Country: None (occurrence: None)
  Receive Date: 20090610
  Receipt Date: 20090528
  Transmission Date: 20091009
  Serious: Yes (Hospitalization, Other)
  Sender: FDA-Public Use
  Company Number: US-ELI_LILLY_AND_COMPANY-US200812002413

PATIENT
  Sex: Female
  Weight: 75.283 kg

DRUGS (44)
  1. BYETTA [Suspect]
     Dosage: UNK, UNKNOWN
     Route: 065
  2. BYETTA [Suspect]
     Dosage: 5 UG, DAILY (1/D)
     Dates: start: 20070326, end: 20080830
  3. FLEXERIL [Concomitant]
     Dosage: UNK, UNKNOWN
  4. TOPROL-XL [Concomitant]
     Dosage: 100 MG, DAILY (1/D)
  5. NAPROXEN [Concomitant]
     Dosage: 500 MG, AS NEEDED
  6. LISINOPRIL HYDROCHLORTHIAZID [Concomitant]
     Dosage: UNK, DAILY (1/D)
  7. PLAVIX [Concomitant]
     Dosage: 75 MG, DAILY (1/D)
  8. SEROQUEL [Concomitant]
     Dosage: 25 MG, DAILY (1/D)
  9. STARLIX [Concomitant]
     Dosage: UNK, 3/D
  10. LOPID [Concomitant]
     Dosage: 600 MG, 2/D
  11. AVANDAMET [Concomitant]
     Dosage: UNK, 2/D
  12. VITAMIN D [Concomitant]
     Dosage: UNK, WEEKLY (1/W)
  13. XANAX [Concomitant]
     Dosage: 1 MG, AS NEEDED
  14. METFORMIN [Concomitant]
     Dosage: UNK, UNKNOWN
  15. PIOGLITAZONE [Concomitant]
     Dosage: UNK, UNKNOWN
  16. PEXEVA [Concomitant]
     Dosage: 20 MG, UNKNOWN
  17. OXYCODONE W/PARACETAMOL [Concomitant]
     Dosage: UNK, UNKNOWN
  18. WELLBUTRIN XL [Concomitant]
     Dosage: 150 MG, UNKNOWN
  19. TRAMADOL HCL [Concomitant]
     Dosage: UNK, UNKNOWN
  20. LONOX [Concomitant]
     Dosage: UNK, UNKNOWN
  21. FLECTOR [Concomitant]
     Dosage: UNK, UNKNOWN
  22. AMLODIPINE BESYLATE AND BENAZEPRIL HCL [Concomitant]
     Dosage: UNK, UNKNOWN
  23. RANITIDINE [Concomitant]
     Dosage: 300 MG, UNKNOWN
  24. OTHER CHOLESTEROL AND TRIGLYCERIDE REDUCERS [Concomitant]
     Dosage: UNK, UNKNOWN
  25. IMITREX [Concomitant]
  26. LEXAPRO [Concomitant]
  27. HYZAAR [Concomitant]
  28. TRICOR [Concomitant]
  29. LOSARTAN POTASSIUM [Concomitant]
  30. AMITRIPTLINE HYDROCHLORIDE TAB [Concomitant]
  31. NEURONTIN [Concomitant]
  32. HYDROCHLOROTHIAZIDE [Concomitant]
  33. NORTRIPTYLINE /00006502/ [Concomitant]
  34. PRAVACHOL [Concomitant]
  35. FLONASE [Concomitant]
  36. INDOMETHACIN [Concomitant]
  37. EFFEXOR XR [Concomitant]
  38. ATENOLOL [Concomitant]
  39. LASIX [Concomitant]
  40. PERCOCET [Concomitant]
  41. AVANDIA [Concomitant]
     Dosage: UNK, UNKNOWN
     Dates: end: 20070101
  42. IBUPROFEN [Concomitant]
     Dosage: UNK, UNKNOWN
  43. HYDROMORPHONE [Concomitant]
     Dosage: UNK, UNKNOWN
  44. HYDROXYZINE [Concomitant]
     Dosage: UNK, UNKNOWN

REACTIONS (6)
  - ABDOMINAL DISTENSION [None]
  - DIARRHOEA [None]
  - NAUSEA [None]
  - PANCREATITIS [None]
  - POLYMYALGIA RHEUMATICA [None]
  - VOMITING [None]
